FAERS Safety Report 14614054 (Version 1)
Quarter: 2018Q1

REPORT INFORMATION
  Report Type: Spontaneous
  Country: US (occurrence: US)
  Receive Date: 20180308
  Receipt Date: 20180308
  Transmission Date: 20180509
  Serious: No
  Sender: FDA-Public Use
  Company Number: US-PFIZER INC-2018096344

PATIENT
  Age: 81 Year
  Sex: Female
  Weight: 65.76 kg

DRUGS (1)
  1. XELJANZ XR [Suspect]
     Active Substance: TOFACITINIB CITRATE
     Indication: RHEUMATOID ARTHRITIS
     Dosage: 11 MG, DAILY
     Route: 048
     Dates: start: 20180201, end: 20180226

REACTIONS (5)
  - Psoriasis [Unknown]
  - Gastrointestinal disorder [Unknown]
  - Fatigue [Unknown]
  - Dizziness [Unknown]
  - Ocular discomfort [Unknown]
